FAERS Safety Report 19684302 (Version 2)
Quarter: 2021Q3

REPORT INFORMATION
  Report Type: Spontaneous
  Country: CZ (occurrence: CZ)
  Receive Date: 20210811
  Receipt Date: 20210830
  Transmission Date: 20211014
  Serious: Yes (Other)
  Sender: FDA-Public Use
  Company Number: CZ-CELLTRION INC.-2021CZ010492

PATIENT

DRUGS (12)
  1. TRASTUZUMAB. [Suspect]
     Active Substance: TRASTUZUMAB
     Dosage: 8 MG/KG, EVERY 21 DAYS
     Route: 042
  2. DOCETAXEL. [Suspect]
     Active Substance: DOCETAXEL
     Dosage: 75 MG/M2, EVERY 21 DAYS
     Route: 042
  3. TRASTUZUMAB. [Suspect]
     Active Substance: TRASTUZUMAB
     Dosage: 6 MG/KG, EVERY 21 DAYS
     Route: 042
  4. DOCETAXEL. [Suspect]
     Active Substance: DOCETAXEL
     Indication: BREAST CANCER METASTATIC
     Dosage: 75 MG/M2, EVERY 21 DAYS
     Route: 042
     Dates: start: 201507
  5. PERTUZUMAB. [Suspect]
     Active Substance: PERTUZUMAB
     Indication: BREAST CANCER METASTATIC
     Dosage: 420 MG, EVERY 21 DAYS
     Route: 042
  6. GOSERELIN [Concomitant]
     Active Substance: GOSERELIN
     Dosage: UNK
  7. DOCETAXEL. [Suspect]
     Active Substance: DOCETAXEL
     Dosage: 90 MG/M2, EVERY 21 DAYS
     Route: 042
     Dates: end: 201105
  8. PACLITAXEL. [Concomitant]
     Active Substance: PACLITAXEL
     Dosage: 90 MG/M2, 1/WEEK
  9. LETROZOLE. [Suspect]
     Active Substance: LETROZOLE
     Indication: BREAST CANCER METASTATIC
     Dosage: UNK
     Route: 065
     Dates: start: 201507
  10. FULVESTRANT. [Concomitant]
     Active Substance: FULVESTRANT
     Dosage: UNK
  11. TAMOXIFEN [Concomitant]
     Active Substance: TAMOXIFEN
     Dosage: UNK
  12. TRASTUZUMAB. [Suspect]
     Active Substance: TRASTUZUMAB
     Indication: BREAST CANCER METASTATIC
     Dosage: 6 MG/KG, EVERY 21 DAYS
     Route: 042
     Dates: end: 202105

REACTIONS (10)
  - Joint stiffness [Unknown]
  - Haematotoxicity [Unknown]
  - Myalgia [Unknown]
  - Alopecia [Unknown]
  - Nail disorder [Unknown]
  - Asthenia [Unknown]
  - Neuropathy peripheral [Unknown]
  - Fatigue [Unknown]
  - Arthralgia [Unknown]
  - Diarrhoea [Unknown]
